FAERS Safety Report 5306961-0 (Version None)
Quarter: 2007Q2

REPORT INFORMATION
  Report Type: 
  Country: None (occurrence: None)
  Receive Date: 20070425
  Receipt Date: 20070416
  Transmission Date: 20071010
  Serious: Yes (Hospitalization)
  Sender: FDA-Public Use
  Company Number: CN-JNJFOC-20070403715

PATIENT
  Age: 8 Month
  Sex: Female
  Weight: 9 kg

DRUGS (2)
  1. TYLENOL (CAPLET) [Suspect]
     Route: 048
  2. TYLENOL (CAPLET) [Suspect]
     Indication: PYREXIA
     Dosage: 50 MG FOUR TIMES TOTAL
     Route: 048

REACTIONS (2)
  - HYPERSENSITIVITY [None]
  - RASH [None]
